FAERS Safety Report 19158046 (Version 1)
Quarter: 2021Q2

REPORT INFORMATION
  Report Type: Report from Study
  Country: RU (occurrence: RU)
  Receive Date: 20210420
  Receipt Date: 20210420
  Transmission Date: 20210717
  Serious: Yes (Hospitalization)
  Sender: FDA-Public Use
  Company Number: RU-CELGENEUS-RUS-20210300452

PATIENT
  Age: 33 Year
  Sex: Male
  Weight: 62 kg

DRUGS (6)
  1. PREDNISONE. [Concomitant]
     Active Substance: PREDNISONE
     Indication: CROHN^S DISEASE
     Dosage: 120 MILLIGRAM
     Route: 041
     Dates: start: 202003, end: 202003
  2. OZANIMOD. [Suspect]
     Active Substance: OZANIMOD
     Dosage: .92 MILLIGRAM
     Route: 048
     Dates: start: 20210226, end: 20210302
  3. BUDESONID [Concomitant]
     Active Substance: BUDESONIDE
     Indication: CROHN^S DISEASE
     Dosage: 9 MILLIGRAM
     Route: 048
     Dates: start: 20201115
  4. OZANIMOD. [Suspect]
     Active Substance: OZANIMOD
     Indication: CROHN^S DISEASE
     Dosage: .92 MILLIGRAM
     Route: 048
     Dates: start: 20201228
  5. PREDNISONE. [Concomitant]
     Active Substance: PREDNISONE
     Dosage: 90 MILLIGRAM
     Route: 048
     Dates: start: 202103, end: 202103
  6. MESALAZIN [Concomitant]
     Active Substance: MESALAMINE
     Indication: CROHN^S DISEASE
     Dosage: 3600 MILLIGRAM
     Route: 048
     Dates: start: 20201101

REACTIONS (2)
  - Crohn^s disease [Recovered/Resolved]
  - COVID-19 [Recovered/Resolved]

NARRATIVE: CASE EVENT DATE: 20210226
